FAERS Safety Report 4552337-3 (Version None)
Quarter: 2005Q1

REPORT INFORMATION
  Report Type: 
  Country: None (occurrence: None)
  Receive Date: 20050112
  Receipt Date: 20050112
  Transmission Date: 20050727
  Serious: Yes (Other)
  Sender: FDA-Public Use
  Company Number: None

PATIENT
  Age: 81 Year
  Sex: Male

DRUGS (1)
  1. GABAPENTIN [Suspect]
     Dosage: ONE BY MOUTH AT BEDTIME
     Route: 048
     Dates: start: 20040320

REACTIONS (2)
  - ENURESIS [None]
  - PHARMACEUTICAL PRODUCT COMPLAINT [None]
